FAERS Safety Report 23908623 (Version 1)
Quarter: 2024Q2

REPORT INFORMATION
  Report Type: Spontaneous
  Country: US (occurrence: US)
  Receive Date: 20240528
  Receipt Date: 20240528
  Transmission Date: 20240716
  Serious: No
  Sender: FDA-Public Use
  Company Number: US-PERRIGO-23US006044

PATIENT
  Age: 60 Year
  Sex: Female
  Weight: 61.678 kg

DRUGS (3)
  1. MINOXIDIL [Suspect]
     Active Substance: MINOXIDIL
     Indication: Alopecia
     Dosage: 0.5 CAPFUL, QD
     Route: 061
     Dates: start: 20230406
  2. MINOXIDIL [Suspect]
     Active Substance: MINOXIDIL
     Dosage: 0.5 CAPFUL OF LIQUID, QD
     Route: 061
     Dates: start: 20230517, end: 20230518
  3. MINOXIDIL [Suspect]
     Active Substance: MINOXIDIL
     Dosage: 0.5 CAPFUL OF LIQUID, QD
     Route: 061
     Dates: start: 20230428, end: 20230430

REACTIONS (1)
  - Wrong technique in product usage process [Unknown]

NARRATIVE: CASE EVENT DATE: 20230428
